FAERS Safety Report 6027860-5 (Version None)
Quarter: 2009Q1

REPORT INFORMATION
  Report Type: 
  Country: None (occurrence: None)
  Receive Date: 20090105
  Receipt Date: 20090105
  Transmission Date: 20090719
  Serious: Yes (Hospitalization)
  Sender: FDA-Public Use
  Company Number: JP-B.I. PHARMACEUTICALS,INC./RIDGEFIELD-2008-BP-18828NB

PATIENT
  Sex: Female
  Weight: 73.8 kg

DRUGS (2)
  1. MICARDIS [Suspect]
     Indication: HYPERTENSION
     Dosage: 40MG
     Route: 048
     Dates: start: 20060803, end: 20080710
  2. LIPITOR [Concomitant]
     Dosage: 10MG
     Route: 048
     Dates: start: 20070105

REACTIONS (1)
  - CEREBRAL INFARCTION [None]
